FAERS Safety Report 7789269-3 (Version None)
Quarter: 2011Q3

REPORT INFORMATION
  Report Type: 
  Country: None (occurrence: None)
  Receive Date: 20110930
  Receipt Date: 20110929
  Transmission Date: 20111222
  Serious: Yes (Other)
  Sender: FDA-Public Use
  Company Number: US-GLAXOSMITHKLINE-A0946435A

PATIENT
  Age: 63 Year
  Sex: Female

DRUGS (1)
  1. NICODERM CQ [Suspect]
     Indication: SMOKING CESSATION THERAPY
     Route: 062
     Dates: start: 20110829, end: 20110829

REACTIONS (5)
  - DRUG ADMINISTRATION ERROR [None]
  - NAUSEA [None]
  - HEART RATE INCREASED [None]
  - HALLUCINATION [None]
  - DIZZINESS [None]
